FAERS Safety Report 8460864-1 (Version None)
Quarter: 2012Q2

REPORT INFORMATION
  Report Type: 
  Country: None (occurrence: None)
  Receive Date: 20120625
  Receipt Date: 20120606
  Transmission Date: 20120825
  Serious: Yes (Other)
  Sender: FDA-Public Use
  Company Number: US-JNJCP-30000111049

PATIENT
  Age: 66 Year
  Sex: Female
  Weight: 126 kg

DRUGS (5)
  1. LIPITOR [Concomitant]
     Dosage: 10MG ONCE DAILY
  2. METHOXSALEN [Suspect]
     Dosage: ENOUGH TO COVER AFTER I APPL THE MOISTURE, ONE TIME A DAY
     Route: 061
  3. UNSPECIFIED MOISTURIZER [Suspect]
     Indication: PRODUCT USED FOR UNKNOWN INDICATION
     Route: 061
  4. AMITRIPYLINE 10MG [Concomitant]
     Indication: PAIN
     Dosage: 10MG
  5. METHOXSALEN [Suspect]
     Dosage: ENOUGH TO COVER AFTER I APPL THE MOISTUR, ONE TIME A DAY
     Route: 061

REACTIONS (3)
  - MALIGNANT MELANOMA [None]
  - BASAL CELL CARCINOMA [None]
  - SKIN CANCER [None]
